FAERS Safety Report 4390490-5 (Version None)
Quarter: 2004Q2

REPORT INFORMATION
  Report Type: 
  Country: None (occurrence: None)
  Receive Date: 20040630
  Receipt Date: 20040623
  Transmission Date: 20050107
  Serious: Yes (Hospitalization)
  Sender: FDA-Public Use
  Company Number: HQWYE647724JUN04

PATIENT
  Age: 5 Year
  Sex: Female

DRUGS (1)
  1. CHILDREN'S ADVIL [Suspect]
     Route: 048
     Dates: start: 20040602, end: 20040602

REACTIONS (2)
  - CONDITION AGGRAVATED [None]
  - LYMPHADENITIS [None]
